FAERS Safety Report 6807128-7 (Version None)
Quarter: 2010Q2

REPORT INFORMATION
  Report Type: 
  Country: None (occurrence: None)
  Receive Date: 20100629
  Receipt Date: 20080730
  Transmission Date: 20101027
  Serious: No
  Sender: FDA-Public Use
  Company Number: US-PFIZER INC-2008047205

PATIENT
  Sex: Female
  Weight: 49.44 kg

DRUGS (12)
  1. ZYVOX [Suspect]
     Indication: OSTEOMYELITIS
     Dates: start: 20080507
  2. PLAVIX [Concomitant]
  3. GABAPENTIN [Concomitant]
  4. ZINC SULFATE [Concomitant]
  5. RAMIPRIL [Concomitant]
  6. SIMVASTATIN [Concomitant]
  7. METFORMIN HCL [Concomitant]
  8. PRILOSEC [Concomitant]
  9. VITAMIN C [Concomitant]
  10. ALL OTHER THERAPEUTIC PRODUCTS [Concomitant]
  11. FEOSOL [Concomitant]
  12. OXYCODONE HCL [Concomitant]

REACTIONS (4)
  - CONSTIPATION [None]
  - NAUSEA [None]
  - VOMITING [None]
  - WEIGHT DECREASED [None]
